FAERS Safety Report 14149570 (Version 1)
Quarter: 2017Q4

REPORT INFORMATION
  Report Type: Spontaneous
  Country: IE (occurrence: IE)
  Receive Date: 20171101
  Receipt Date: 20171101
  Transmission Date: 20180321
  Serious: Yes (Hospitalization)
  Sender: FDA-Public Use
  Company Number: None

PATIENT
  Age: 30 Year
  Sex: Male
  Weight: 90 kg

DRUGS (1)
  1. BACTERIOSTATIC WATER [Suspect]
     Active Substance: WATER
     Indication: DRUG THERAPY
     Dosage: ?          QUANTITY:1 SUPPOSITORY(IES);?
     Route: 030

REACTIONS (2)
  - Malaise [None]
  - Product sterility lacking [None]
